FAERS Safety Report 14650735 (Version 1)
Quarter: 2018Q1

REPORT INFORMATION
  Report Type: Spontaneous
  Country: US (occurrence: US)
  Receive Date: 20180316
  Receipt Date: 20180316
  Transmission Date: 20180509
  Serious: No
  Sender: FDA-Public Use
  Company Number: US-PFIZER INC-2018109977

PATIENT
  Age: 66 Year
  Sex: Female
  Weight: 111.57 kg

DRUGS (2)
  1. LORAZEPAM. [Suspect]
     Active Substance: LORAZEPAM
     Indication: WITHDRAWAL SYNDROME
     Dosage: 2 DF, UNK (TOOK 2 LORAZEPAM)
  2. LORAZEPAM. [Suspect]
     Active Substance: LORAZEPAM
     Dosage: 2 DF, UNK (TOOK 2 MORE LORAZEPAM )

REACTIONS (2)
  - Feeling jittery [Unknown]
  - Product use in unapproved indication [Not Recovered/Not Resolved]

NARRATIVE: CASE EVENT DATE: 20180311
